FAERS Safety Report 20506303 (Version 1)
Quarter: 2022Q1

REPORT INFORMATION
  Report Type: Spontaneous
  Country: DK (occurrence: DK)
  Receive Date: 20220223
  Receipt Date: 20220223
  Transmission Date: 20220423
  Serious: Yes (Hospitalization)
  Sender: FDA-Public Use
  Company Number: None

PATIENT
  Age: 78 Year
  Sex: Male
  Weight: 70 kg

DRUGS (3)
  1. ZYPADHERA [Suspect]
     Active Substance: OLANZAPINE PAMOATE
     Indication: Schizophrenia
     Dosage: 210 MG, OTHER (ONCE IN FOUR WEEKS)
     Route: 030
     Dates: start: 20190920
  2. ZYPADHERA [Suspect]
     Active Substance: OLANZAPINE PAMOATE
     Indication: Schizophrenia
     Dosage: 210 MG, OTHER (ONCE IN FOUR WEEKS)
     Route: 030
     Dates: start: 20190920
  3. ZYPADHERA [Suspect]
     Active Substance: OLANZAPINE PAMOATE
     Indication: Schizophrenia
     Dosage: 210 MG, OTHER (ONCE IN FOUR WEEKS)
     Route: 030
     Dates: start: 20190920

REACTIONS (14)
  - Presyncope [Unknown]
  - Cold sweat [Unknown]
  - Tachypnoea [Unknown]
  - Restlessness [Unknown]
  - Depressed level of consciousness [Not Recovered/Not Resolved]
  - Malaise [Unknown]
  - Generalised tonic-clonic seizure [Unknown]
  - Tachycardia [Unknown]
  - Ataxia [Unknown]
  - Hypertension [Unknown]
  - Dysarthria [Not Recovered/Not Resolved]
  - Post-injection delirium sedation syndrome [Not Recovered/Not Resolved]
  - Dry mouth [Unknown]
  - Delirium [Unknown]

NARRATIVE: CASE EVENT DATE: 20211201
